FAERS Safety Report 8801151 (Version 1)
Quarter: 2012Q4

REPORT INFORMATION
  Report Type: 
  Country: FR (occurrence: FR)
  Receive Date: 20120921
  Receipt Date: 20120921
  Transmission Date: 20130627
  Serious: Yes (Hospitalization, Other)
  Sender: FDA-Public Use
  Company Number: FR-ASTRAZENECA-2012SE71628

PATIENT
  Sex: Male

DRUGS (5)
  1. MERONEM [Suspect]
     Route: 042
     Dates: start: 2009
  2. MERONEM [Suspect]
     Route: 042
     Dates: start: 20120701, end: 20120703
  3. NEBCINE [Suspect]
     Route: 042
     Dates: start: 2009
  4. NEBCINE [Suspect]
     Route: 042
     Dates: start: 20120701, end: 20120703
  5. CREON [Concomitant]

REACTIONS (6)
  - Arthralgia [Unknown]
  - Serum sickness [Unknown]
  - Rash [Unknown]
  - Hepatocellular injury [Unknown]
  - Vitamin D deficiency [None]
  - Urticaria [None]
